FAERS Safety Report 7570132-8 (Version None)
Quarter: 2011Q3

REPORT INFORMATION
  Report Type: 
  Country: None (occurrence: None)
  Receive Date: 20110620
  Receipt Date: 20110610
  Transmission Date: 20111222
  Serious: Yes (Other)
  Sender: FDA-Public Use
  Company Number: ACO_25140_2011

PATIENT
  Age: 75 Year
  Sex: Female
  Weight: 68 kg

DRUGS (7)
  1. KEPPRA [Concomitant]
  2. AMANTADINE HCL [Concomitant]
  3. EVISTA [Concomitant]
  4. AMPYRA [Suspect]
     Indication: MULTIPLE SCLEROSIS
     Dosage: 10 MG, BID, ORAL
     Route: 048
     Dates: start: 20110501, end: 20110611
  5. ATENOLOL [Concomitant]
  6. ASPIRIN [Concomitant]
  7. GILENYA [Concomitant]

REACTIONS (4)
  - DRUG INEFFECTIVE [None]
  - CONVULSION [None]
  - ASTHENIA [None]
  - COGNITIVE DISORDER [None]
